FAERS Safety Report 10195015 (Version 2)
Quarter: 2014Q3

REPORT INFORMATION
  Report Type: Report from Study
  Country: US (occurrence: US)
  Receive Date: 20140526
  Receipt Date: 20140819
  Transmission Date: 20150326
  Serious: Yes (Hospitalization)
  Sender: FDA-Public Use
  Company Number: PHEH2014US010140

PATIENT
  Age: 72 Year
  Sex: Female
  Weight: 57.6 kg

DRUGS (2)
  1. EXJADE [Suspect]
     Active Substance: DEFERASIROX
     Indication: HAEMOCHROMATOSIS
     Dosage: 1000 MG, QD
     Route: 048
     Dates: end: 20110612
  2. EXJADE [Suspect]
     Active Substance: DEFERASIROX
     Indication: LYMPHOPROLIFERATIVE DISORDER
     Dosage: 500 MG, QD
     Route: 048
     Dates: start: 20110612

REACTIONS (5)
  - Syncope [Recovered/Resolved]
  - Dizziness [Unknown]
  - Head injury [Unknown]
  - Fall [Recovered/Resolved]
  - Loss of consciousness [Unknown]

NARRATIVE: CASE EVENT DATE: 20140503
